FAERS Safety Report 7174145-X (Version None)
Quarter: 2010Q4

REPORT INFORMATION
  Report Type: 
  Country: None (occurrence: None)
  Receive Date: 20101219
  Receipt Date: 20100319
  Transmission Date: 20110411
  Serious: No
  Sender: FDA-Public Use
  Company Number: US-AMGEN-KDL401757

PATIENT

DRUGS (3)
  1. ENBREL [Suspect]
     Indication: RHEUMATOID ARTHRITIS
     Dosage: 25 MG, 2 TIMES/WK
     Dates: start: 19970101
  2. QUINAPRIL HYDROCHLORIDE [Concomitant]
  3. TOPROL-XL [Concomitant]
     Dosage: 50 MG, UNK

REACTIONS (2)
  - NASOPHARYNGITIS [None]
  - RHEUMATOID ARTHRITIS [None]
